FAERS Safety Report 11913484 (Version 1)
Quarter: 2016Q1

REPORT INFORMATION
  Report Type: Spontaneous
  Country: BR (occurrence: BR)
  Receive Date: 20160113
  Receipt Date: 20160113
  Transmission Date: 20160526
  Serious: Yes (Hospitalization, Other)
  Sender: FDA-Public Use
  Company Number: BR-PFIZER INC-2016007958

PATIENT
  Sex: Female

DRUGS (4)
  1. TRAVATAN [Suspect]
     Active Substance: TRAVOPROST
     Dosage: UNK
  2. XALATAN [Suspect]
     Active Substance: LATANOPROST
     Indication: GLAUCOMA
     Dosage: 1 DROP IN EACH EYE, EVERY 12 HOURS
     Dates: start: 2010
  3. BRIMONIDINE [Suspect]
     Active Substance: BRIMONIDINE TARTRATE
     Indication: GLAUCOMA
     Dosage: 1 DROP IN EACH EYE, EVERY 12 HOURS
     Dates: start: 2010
  4. AZORGA [Suspect]
     Active Substance: BRINZOLAMIDE\TIMOLOL MALEATE
     Indication: GLAUCOMA
     Dosage: 1 DROP IN EACH EYE, EVERY 12 HOURS
     Dates: start: 20101123

REACTIONS (10)
  - Blindness unilateral [Not Recovered/Not Resolved]
  - Depression [Not Recovered/Not Resolved]
  - Cerebrovascular accident [Unknown]
  - Coma [Recovered/Resolved]
  - Bedridden [Not Recovered/Not Resolved]
  - Abasia [Not Recovered/Not Resolved]
  - Suicidal ideation [Not Recovered/Not Resolved]
  - Crying [Not Recovered/Not Resolved]
  - Intraocular pressure increased [Unknown]
  - Product use issue [Unknown]

NARRATIVE: CASE EVENT DATE: 2015
